FAERS Safety Report 20022867 (Version 1)
Quarter: 2021Q4

REPORT INFORMATION
  Report Type: Spontaneous
  Country: US (occurrence: US)
  Receive Date: 20211102
  Receipt Date: 20211102
  Transmission Date: 20220303
  Serious: Yes (Other)
  Sender: FDA-Public Use
  Company Number: US-APOTEX-2021AP045107

PATIENT
  Age: 7 Decade
  Sex: Female

DRUGS (5)
  1. DILTIAZEM [Suspect]
     Active Substance: DILTIAZEM
     Indication: Heart rate
     Dosage: 120 MILLIGRAM, QD
     Route: 065
  2. DILTIAZEM [Suspect]
     Active Substance: DILTIAZEM
     Dosage: 30 MILLIGRAM, BID
     Route: 065
  3. FLECAINIDE [Suspect]
     Active Substance: FLECAINIDE
     Indication: Cardioversion
     Dosage: UNK
     Route: 065
  4. DIGOXIN [Concomitant]
     Active Substance: DIGOXIN
     Indication: Heart rate
     Dosage: UNK
     Route: 065
  5. APIXABAN [Concomitant]
     Active Substance: APIXABAN
     Indication: Anticoagulation drug level
     Dosage: UNK
     Route: 065

REACTIONS (5)
  - Electrocardiogram QRS complex prolonged [Recovering/Resolving]
  - Atrial flutter [Unknown]
  - Supraventricular tachycardia [Unknown]
  - Toxicity to various agents [Unknown]
  - Orthostatic hypotension [Unknown]
